FAERS Safety Report 19013832 (Version 1)
Quarter: 2021Q1

REPORT INFORMATION
  Report Type: Report from Study
  Country: None (occurrence: US)
  Receive Date: 20210315
  Receipt Date: 20210315
  Transmission Date: 20210420
  Serious: Yes (Other)
  Sender: FDA-Public Use
  Company Number: US-ABBVIE-21K-163-3805875-00

PATIENT
  Sex: Female

DRUGS (1)
  1. HUMIRA [Suspect]
     Active Substance: ADALIMUMAB
     Indication: PRODUCT USED FOR UNKNOWN INDICATION
     Dosage: CF
     Route: 058

REACTIONS (5)
  - Pneumonia [Recovering/Resolving]
  - Pancreatic failure [Recovering/Resolving]
  - Sinus pain [Recovering/Resolving]
  - Tooth extraction [Unknown]
  - Paranasal sinus discomfort [Recovering/Resolving]

NARRATIVE: CASE EVENT DATE: 2021
